FAERS Safety Report 22828078 (Version 3)
Quarter: 2023Q4

REPORT INFORMATION
  Report Type: Spontaneous
  Country: US (occurrence: US)
  Receive Date: 20230816
  Receipt Date: 20231020
  Transmission Date: 20240110
  Serious: No
  Sender: FDA-Public Use
  Company Number: US-PFIZER INC-202300275669

PATIENT
  Age: 13 Year
  Sex: Male
  Weight: 36.281 kg

DRUGS (1)
  1. GENOTROPIN [Suspect]
     Active Substance: SOMATROPIN
     Indication: Hypothalamo-pituitary disorder
     Dosage: 1.4 MG, 6 DAYS A WEEK
     Dates: start: 20230811

REACTIONS (3)
  - Device malfunction [Unknown]
  - Device issue [Unknown]
  - Device leakage [Unknown]
